FAERS Safety Report 8142737-7 (Version None)
Quarter: 2012Q1

REPORT INFORMATION
  Report Type: 
  Country: None (occurrence: None)
  Receive Date: 20120216
  Receipt Date: 20120207
  Transmission Date: 20120608
  Serious: Yes (Other)
  Sender: FDA-Public Use
  Company Number: US-ASTRAZENECA-2012SE08460

PATIENT

DRUGS (2)
  1. ENTOCORT EC [Suspect]
     Indication: PROTEIN-LOSING GASTROENTEROPATHY
     Route: 048
  2. ENTOCORT EC [Suspect]
     Route: 048

REACTIONS (2)
  - CUSHING'S SYNDROME [None]
  - GASTROINTESTINAL HAEMORRHAGE [None]
